FAERS Safety Report 5166795-7 (Version None)
Quarter: 2006Q4

REPORT INFORMATION
  Report Type: 
  Country: None (occurrence: None)
  Receive Date: 20061204
  Receipt Date: 20061204
  Transmission Date: 20070319
  Serious: Yes (Hospitalization)
  Sender: FDA-Public Use
  Company Number: None

PATIENT
  Age: 62 Year
  Weight: 44 kg

DRUGS (2)
  1. SPIRONOLACTONE [Suspect]
     Indication: HYPERTENSION
     Dosage: 100MG QD PO
     Route: 048
  2. LISINOPRIL [Suspect]
     Indication: HYPERTENSION
     Dosage: 10MG QD PO
     Route: 048

REACTIONS (8)
  - ASTHENIA [None]
  - BLOOD POTASSIUM INCREASED [None]
  - DIZZINESS [None]
  - HYPERKALAEMIA [None]
  - LABORATORY TEST ABNORMAL [None]
  - RENAL FAILURE ACUTE [None]
  - RENAL TUBULAR NECROSIS [None]
  - THIRST [None]
